FAERS Safety Report 11626202 (Version 3)
Quarter: 2015Q4

REPORT INFORMATION
  Report Type: Report from Study
  Country: FR (occurrence: FR)
  Receive Date: 20151013
  Receipt Date: 20151112
  Transmission Date: 20160304
  Serious: Yes (Other)
  Sender: FDA-Public Use
  Company Number: FR-EXELIXIS-XL18415005723

PATIENT
  Age: 72 Year
  Sex: Male
  Weight: 64 kg

DRUGS (12)
  1. XL184 [Suspect]
     Active Substance: CABOZANTINIB
     Dosage: 20 MG, QD
     Route: 048
     Dates: end: 20151005
  2. LASILIX [Concomitant]
     Active Substance: FUROSEMIDE
  3. ACIDE FOLIQUE [Concomitant]
     Active Substance: FOLIC ACID
  4. XL184 [Suspect]
     Active Substance: CABOZANTINIB
     Indication: HEPATOCELLULAR CARCINOMA
     Dosage: 60 MG, QD
     Route: 048
     Dates: start: 20141202
  5. PREVISCAN [Concomitant]
     Active Substance: FLUINDIONE
  6. NEFOPAM [Concomitant]
     Active Substance: NEFOPAM
  7. LEVOTHYROX [Concomitant]
     Active Substance: LEVOTHYROXINE
  8. ALDACTONE [Concomitant]
     Active Substance: SPIRONOLACTONE
  9. CERAT GALIEN [Concomitant]
  10. VITAMIN B12 [Concomitant]
     Active Substance: CYANOCOBALAMIN
  11. EUPANTOL [Concomitant]
     Active Substance: PANTOPRAZOLE SODIUM
  12. BISOPROLOL [Concomitant]
     Active Substance: BISOPROLOL

REACTIONS (1)
  - Dyspnoea [Not Recovered/Not Resolved]

NARRATIVE: CASE EVENT DATE: 20150908
